FAERS Safety Report 23452606 (Version 1)
Quarter: 2024Q1

REPORT INFORMATION
  Report Type: Spontaneous
  Country: US (occurrence: None)
  Receive Date: 20240129
  Receipt Date: 20240129
  Transmission Date: 20240409
  Serious: No
  Sender: FDA-Public Use
  Company Number: None

PATIENT
  Age: 46 Year
  Sex: Female
  Weight: 90.9 kg

DRUGS (1)
  1. TYRVAYA [Suspect]
     Active Substance: VARENICLINE TARTRATE

REACTIONS (3)
  - Lymphadenopathy [None]
  - Ear pain [None]
  - Oropharyngeal pain [None]

NARRATIVE: CASE EVENT DATE: 20240119
